APPROVED DRUG PRODUCT: METHYLPREDNISOLONE
Active Ingredient: METHYLPREDNISOLONE
Strength: 24MG
Dosage Form/Route: TABLET;ORAL
Application: A089208 | Product #001
Applicant: PAR PHARMACEUTICAL INC
Approved: Apr 25, 1988 | RLD: No | RS: No | Type: DISCN